FAERS Safety Report 17697597 (Version 1)
Quarter: 2020Q2

REPORT INFORMATION
  Report Type: Spontaneous
  Country: US (occurrence: US)
  Receive Date: 20200423
  Receipt Date: 20200423
  Transmission Date: 20200714
  Serious: No
  Sender: FDA-Public Use
  Company Number: US-ASTRAZENECA-2020SE52146

PATIENT
  Age: 79 Year
  Sex: Female
  Weight: 52.6 kg

DRUGS (3)
  1. FASLODEX [Suspect]
     Active Substance: FULVESTRANT
     Indication: BREAST CANCER FEMALE
     Route: 030
  2. OMEPRAZOLE. [Concomitant]
     Active Substance: OMEPRAZOLE
     Dosage: 20.0MG UNKNOWN
     Route: 065
  3. NAFAZADONE [Concomitant]
     Dosage: UNKNOWN
     Route: 065

REACTIONS (2)
  - Abdominal discomfort [Recovered/Resolved with Sequelae]
  - Vaginal odour [Recovered/Resolved]
